FAERS Safety Report 8887206 (Version 3)
Quarter: 2013Q4

REPORT INFORMATION
  Report Type: Report from Study
  Country: CA (occurrence: CA)
  Receive Date: 20121105
  Receipt Date: 20131129
  Transmission Date: 20140711
  Serious: Yes (Hospitalization, Other)
  Sender: FDA-Public Use
  Company Number: PHHY2011CA32150

PATIENT
  Sex: Female

DRUGS (3)
  1. ACLASTA [Suspect]
     Indication: OSTEOPOROSIS
     Dosage: UNK
     Route: 042
     Dates: start: 20100609
  2. ACLASTA [Suspect]
     Dosage: UNK
     Route: 042
     Dates: start: 20110608
  3. ACLASTA [Suspect]
     Dosage: UNK
     Route: 042
     Dates: start: 20121128

REACTIONS (5)
  - Diverticulitis [Unknown]
  - Gastrointestinal disorder [Unknown]
  - Polyp [Unknown]
  - Blood pressure decreased [Unknown]
  - Myalgia [Recovered/Resolved]
